FAERS Safety Report 10648211 (Version 1)
Quarter: 2014Q4

REPORT INFORMATION
  Report Type: Spontaneous
  Country: US (occurrence: None)
  Receive Date: 20141210
  Receipt Date: 20141210
  Transmission Date: 20150529
  Serious: Yes (Hospitalization, Other)
  Sender: FDA-Public Use
  Company Number: US-ZYDUS-005923

PATIENT
  Age: 9 Year
  Sex: Male

DRUGS (2)
  1. VALPROIC ACID (VALPROIC ACID) [Suspect]
     Active Substance: VALPROIC ACID
  2. PHENOBARBITAL (PHENOBARBITAL) [Suspect]
     Active Substance: PHENOBARBITAL

REACTIONS (3)
  - Face oedema [None]
  - Drug reaction with eosinophilia and systemic symptoms [None]
  - Pneumonia [None]
